FAERS Safety Report 18384272 (Version 1)
Quarter: 2020Q4

REPORT INFORMATION
  Report Type: Spontaneous
  Country: FR (occurrence: FR)
  Receive Date: 20201015
  Receipt Date: 20201015
  Transmission Date: 20210114
  Serious: Yes (Other)
  Sender: FDA-Public Use
  Company Number: NVSC2020FR271523

PATIENT
  Age: 75 Year
  Sex: Male
  Weight: 92 kg

DRUGS (2)
  1. AMOXICILLINE [Suspect]
     Active Substance: AMOXICILLIN
     Indication: SEPTIC ARTHRITIS STREPTOCOCCAL
     Dosage: 8 G, Q8H
     Route: 041
     Dates: start: 20200904, end: 20200910
  2. NEFOPAM HYDROCHLORIDE [Suspect]
     Active Substance: NEFOPAM HYDROCHLORIDE
     Indication: PAIN
     Dosage: 60 MG, QD
     Route: 041
     Dates: start: 20200908, end: 20200910

REACTIONS (2)
  - Dyspnoea [Recovered/Resolved]
  - Rash [Recovered/Resolved]

NARRATIVE: CASE EVENT DATE: 20200910
